FAERS Safety Report 17330656 (Version 2)
Quarter: 2020Q2

REPORT INFORMATION
  Report Type: Other
  Country: US (occurrence: US)
  Receive Date: 20200128
  Receipt Date: 20200602
  Transmission Date: 20200713
  Serious: Yes (Hospitalization, Other)
  Sender: FDA-Public Use
  Company Number: US-AMAG PHARMACEUTICALS, INC.-AMAG202000217

PATIENT
  Age: 30 Year
  Sex: Female

DRUGS (2)
  1. CELEXA [Concomitant]
     Active Substance: CITALOPRAM HYDROBROMIDE
     Indication: DEPRESSION
  2. MAKENA [Suspect]
     Active Substance: HYDROXYPROGESTERONE CAPROATE
     Indication: PREMATURE DELIVERY
     Route: 058
     Dates: start: 20191030, end: 20200101

REACTIONS (8)
  - Preterm premature rupture of membranes [Recovered/Resolved]
  - Breech presentation [Recovered/Resolved]
  - Vulvovaginal candidiasis [Unknown]
  - Pulmonary embolism [Unknown]
  - Herpes simplex [Unknown]
  - Premature delivery [Recovered/Resolved]
  - Dizziness [Unknown]
  - Hypotension [Unknown]

NARRATIVE: CASE EVENT DATE: 20191127
